FAERS Safety Report 8284236 (Version 2)
Quarter: 2012Q4

REPORT INFORMATION
  Report Type: Spontaneous
  Country: US (occurrence: None)
  Receive Date: 20111206
  Receipt Date: 20120925
  Transmission Date: 20130627
  Serious: No
  Sender: FDA-Public Use
  Company Number: SPI201100317

PATIENT
  Age: 59 Year
  Sex: Female
  Weight: 49.9 kg

DRUGS (11)
  1. AMITIZA [Suspect]
     Indication: IRRITABLE BOWEL SYNDROME
     Dosage: 24 MCG, BID, ORAL
     Route: 048
     Dates: start: 20111120
  2. AMITIZA [Suspect]
     Indication: CONSTIPATION
     Dosage: 24 MCG, BID, ORAL
     Route: 048
     Dates: start: 20111120
  3. LEVOTHYROXINE SODIUM [Concomitant]
  4. DIOVAN [Concomitant]
  5. CYMBALTA [Concomitant]
  6. XANAX [Concomitant]
  7. TRAMADOL HYDROCHLORIDE [Concomitant]
  8. FOLIC ACID [Concomitant]
  9. ZINC [Concomitant]
  10. CALCIUM [Concomitant]
  11. DEXILANT [Concomitant]

REACTIONS (7)
  - Back pain [None]
  - Back injury [None]
  - Paraesthesia [None]
  - Pruritus generalised [None]
  - Dyspnoea [None]
  - Chest discomfort [None]
  - Back pain [None]
